FAERS Safety Report 10428384 (Version 4)
Quarter: 2015Q1

REPORT INFORMATION
  Report Type: Report from Study
  Country: US (occurrence: US)
  Receive Date: 20140903
  Receipt Date: 20150331
  Transmission Date: 20150720
  Serious: Yes (Hospitalization, Other)
  Sender: FDA-Public Use
  Company Number: US-ALEXION PHARMACEUTICALS INC.-A201403248

PATIENT

DRUGS (2)
  1. ARIXTRA [Concomitant]
     Active Substance: FONDAPARINUX SODIUM
     Indication: ANTICOAGULANT THERAPY
     Dosage: UNK
     Route: 065
  2. SOLIRIS [Suspect]
     Active Substance: ECULIZUMAB
     Indication: PRODUCT USED FOR UNKNOWN INDICATION
     Dosage: 900 MG, UNK
     Route: 042

REACTIONS (14)
  - Chromaturia [Unknown]
  - Haemoglobin decreased [Unknown]
  - Platelet count decreased [Unknown]
  - Aplastic anaemia [Not Recovered/Not Resolved]
  - Pyrexia [Unknown]
  - Migraine [Unknown]
  - Fatigue [Unknown]
  - Delirium [Unknown]
  - Abnormal clotting factor [Unknown]
  - Sinusitis [Unknown]
  - Blood count abnormal [Unknown]
  - Blood lactate dehydrogenase increased [Unknown]
  - Cytomegalovirus infection [Unknown]
  - Haemolysis [Not Recovered/Not Resolved]

NARRATIVE: CASE EVENT DATE: 2014
